FAERS Safety Report 8533014-0 (Version None)
Quarter: 2012Q3

REPORT INFORMATION
  Report Type: 
  Country: None (occurrence: None)
  Receive Date: 20120724
  Receipt Date: 20120713
  Transmission Date: 20120928
  Serious: Yes (Other)
  Sender: FDA-Public Use
  Company Number: US-GENZYME-LEUK-1000291

PATIENT
  Sex: Female

DRUGS (1)
  1. LEUKINE [Suspect]
     Indication: MALIGNANT MELANOMA
     Dosage: 250 MCG, FOR 14 DAYS EACH MONTH
     Dates: start: 20050301

REACTIONS (1)
  - ENDOMETRIAL CANCER [None]
